FAERS Safety Report 4572422-X (Version None)
Quarter: 2005Q1

REPORT INFORMATION
  Report Type: 
  Country: None (occurrence: None)
  Receive Date: 20050207
  Receipt Date: 20050118
  Transmission Date: 20050727
  Serious: Yes (Other)
  Sender: FDA-Public Use
  Company Number: AU-GLAXOSMITHKLINE-B0365661A

PATIENT
  Sex: Female

DRUGS (5)
  1. VALTREX [Suspect]
     Indication: DRUG USE FOR UNKNOWN INDICATION
     Dosage: 500MG PER DAY
     Route: 048
     Dates: start: 20040301
  2. MAXIDEX [Concomitant]
     Indication: ILL-DEFINED DISORDER
     Route: 065
  3. LIPITOR [Concomitant]
     Indication: ILL-DEFINED DISORDER
     Dosage: 40MG PER DAY
     Route: 048
     Dates: start: 20030701
  4. XALATAN [Concomitant]
     Indication: ILL-DEFINED DISORDER
     Route: 048
     Dates: start: 20040601
  5. TRUSOPT [Concomitant]
     Indication: ILL-DEFINED DISORDER
     Dosage: 1U TWICE PER DAY
     Route: 048
     Dates: start: 20040601

REACTIONS (2)
  - MOLE EXCISION [None]
  - PIGMENTED NAEVUS [None]
